FAERS Safety Report 18599703 (Version 1)
Quarter: 2020Q4

REPORT INFORMATION
  Report Type: Spontaneous
  Country: IN (occurrence: IN)
  Receive Date: 20201210
  Receipt Date: 20201210
  Transmission Date: 20210114
  Serious: Yes (Hospitalization, Other)
  Sender: FDA-Public Use
  Company Number: IN-SCIEGEN-2020SCILIT00461

PATIENT
  Age: 62 Year
  Sex: Male

DRUGS (4)
  1. NAPROXEN. [Suspect]
     Active Substance: NAPROXEN
     Indication: MIGRAINE
     Dosage: 500 MG TWICE DAILY
     Route: 065
  2. PREDNISOLONE. [Interacting]
     Active Substance: PREDNISOLONE
     Indication: RENAL CORTICAL NECROSIS
  3. LOSARTAN. [Concomitant]
     Active Substance: LOSARTAN
     Indication: BLOOD PRESSURE MEASUREMENT
     Dosage: 50 MG ONCE DAILY
     Route: 065
  4. PREDNISOLONE. [Interacting]
     Active Substance: PREDNISOLONE
     Indication: TUBULOINTERSTITIAL NEPHRITIS
     Dosage: 1 MG/KG
     Route: 048

REACTIONS (2)
  - Tubulointerstitial nephritis [Recovering/Resolving]
  - Renal cortical necrosis [Recovering/Resolving]
